FAERS Safety Report 6883522 (Version 2)
Quarter: 2012Q4

REPORT INFORMATION
  Report Type: 
  Country: US (occurrence: US)
  Receive Date: 20090116
  Receipt Date: 20121218
  Transmission Date: 20130627
  Serious: Yes (Disabling, Other)
  Sender: FDA-Public Use
  Company Number: US-BRISTOL-MYERS SQUIBB COMPANY-14068944

PATIENT
  Age: 47 Year
  Sex: Female

DRUGS (5)
  1. ABILIFY [Suspect]
     Indication: POST-TRAUMATIC STRESS DISORDER
     Dosage: Also from 13Aug2004-Ongoing(3 1/2 year);Total therapy-13 years
     Route: 048
     Dates: start: 20040813
  2. ABILIFY [Suspect]
     Indication: DEPRESSION
     Dosage: Also from 13Aug2004-Ongoing(3 1/2 year);Total therapy-13 years
     Route: 048
     Dates: start: 20040813
  3. ABILIFY [Suspect]
     Indication: AGITATION
     Dosage: Also from 13Aug2004-Ongoing(3 1/2 year);Total therapy-13 years
     Route: 048
     Dates: start: 20040813
  4. ABILIFY [Suspect]
     Indication: THINKING ABNORMAL
     Dosage: Also from 13Aug2004-Ongoing(3 1/2 year);Total therapy-13 years
     Route: 048
     Dates: start: 20040813
  5. ZOLOFT [Concomitant]
     Dates: start: 20070109, end: 200706

REACTIONS (1)
  - Weight increased [Unknown]
